FAERS Safety Report 6963133-1 (Version None)
Quarter: 2010Q3

REPORT INFORMATION
  Report Type: 
  Country: None (occurrence: None)
  Receive Date: 20100902
  Receipt Date: 20100820
  Transmission Date: 20110219
  Serious: Yes (Other)
  Sender: FDA-Public Use
  Company Number: PHFR2010GB01669

PATIENT
  Sex: Male

DRUGS (6)
  1. CLOZARIL [Suspect]
     Indication: SCHIZOPHRENIA
     Dosage: 275 MG/DAY
     Route: 048
     Dates: start: 20100309
  2. CLOZARIL [Suspect]
     Dosage: 300 MG, QD
     Route: 048
     Dates: start: 20100713
  3. LANSOPRAZOLE [Concomitant]
     Dosage: 15 MG, UNK
     Route: 048
  4. ACETAMINOPHEN [Concomitant]
  5. DIAZEPAM [Concomitant]
     Dosage: 5 MG, PRN
  6. ZOPICLONE [Concomitant]
     Dosage: 7.5 MG, PRN
     Route: 048

REACTIONS (3)
  - DRUG LEVEL BELOW THERAPEUTIC [None]
  - INCORRECT DOSE ADMINISTERED [None]
  - TREATMENT NONCOMPLIANCE [None]
